FAERS Safety Report 5055388-8 (Version None)
Quarter: 2006Q3

REPORT INFORMATION
  Report Type: 
  Country: None (occurrence: None)
  Receive Date: 20060719
  Receipt Date: 20060705
  Transmission Date: 20061208
  Serious: Yes (Other)
  Sender: FDA-Public Use
  Company Number: CA-BOEHRINGER INGELHEIM PHARMACEUTICALS, INC.-2006-CN-00347CN

PATIENT
  Age: 40 Year
  Sex: Male

DRUGS (7)
  1. TIPRANAVIR + RITONAVIR CO-ADMIN [Suspect]
     Indication: ACQUIRED IMMUNODEFICIENCY SYNDROME
     Dates: start: 20060501
  2. VIDEX EC [Concomitant]
  3. LAMIVUDINE [Concomitant]
     Dosage: 150 MG BID
  4. NORVIR [Concomitant]
     Dosage: 200 MG BID
  5. VFEND [Concomitant]
  6. DARAPRIM/DAPSONE [Concomitant]
  7. LEUCOVORIN CALCIUM [Concomitant]

REACTIONS (1)
  - ACNE [None]
